FAERS Safety Report 17375489 (Version 4)
Quarter: 2020Q3

REPORT INFORMATION
  Report Type: Spontaneous
  Country: CA (occurrence: CA)
  Receive Date: 20200205
  Receipt Date: 20200716
  Transmission Date: 20201102
  Serious: Yes (Other)
  Sender: FDA-Public Use
  Company Number: CA-PFIZER INC-2020047899

PATIENT
  Age: 28 Year
  Sex: Female
  Weight: 72.11 kg

DRUGS (1)
  1. DEPO?PROVERA [Suspect]
     Active Substance: MEDROXYPROGESTERONE ACETATE
     Indication: CONTRACEPTION
     Dosage: ONCE EVERY 3 MONTHS
     Dates: start: 201907

REACTIONS (5)
  - Myocardial infarction [Recovered/Resolved]
  - Blepharospasm [Recovering/Resolving]
  - Abdominal pain upper [Recovered/Resolved]
  - Abdominal pain [Recovered/Resolved]
  - Depression [Recovered/Resolved]
